FAERS Safety Report 8509127-6 (Version None)
Quarter: 2012Q3

REPORT INFORMATION
  Report Type: 
  Country: None (occurrence: None)
  Receive Date: 20120713
  Receipt Date: 20120703
  Transmission Date: 20120928
  Serious: Yes (Hospitalization)
  Sender: FDA-Public Use
  Company Number: US-GLAXOSMITHKLINE-A0983808A

PATIENT
  Age: 66 Year
  Sex: Female

DRUGS (2)
  1. ADRIAMYCIN PFS [Concomitant]
  2. PAZOPANIB [Suspect]
     Indication: ANGIOSARCOMA
     Route: 048

REACTIONS (1)
  - BLOOD TEST ABNORMAL [None]
